FAERS Safety Report 7628786 (Version 3)
Quarter: 2014Q2

REPORT INFORMATION
  Report Type: Spontaneous
  Country: US (occurrence: US)
  Receive Date: 20101014
  Receipt Date: 20140516
  Transmission Date: 20141212
  Serious: Yes (Other)
  Sender: FDA-Public Use
  Company Number: US-BAYER-201036632NA

PATIENT
  Age: 30 Year
  Sex: Female
  Weight: 104.3 kg

DRUGS (8)
  1. YAZ [Suspect]
     Dosage: UNK UNK, UNK
     Route: 048
     Dates: start: 200304, end: 2007
  2. YASMIN [Suspect]
     Route: 048
     Dates: start: 200304, end: 2007
  3. WELLBUTRIN [Concomitant]
     Dosage: 300 MG, DAILY
     Route: 048
     Dates: start: 20060418
  4. AMBIEN [Concomitant]
     Dosage: 10 MG, UNK
     Route: 048
     Dates: start: 20060418
  5. MOM [Concomitant]
     Dosage: UNK, DAILY
     Route: 048
     Dates: start: 20060418
  6. FLAGYL [Concomitant]
     Dosage: 500 MG, TID FOR 7 DAYS
     Route: 048
     Dates: start: 20060420
  7. CIPRO [Concomitant]
     Dosage: 500 MG, BID FOR 7 DAYS
     Route: 048
     Dates: start: 20060420
  8. DARVOCET [Concomitant]
     Dosage: 100 MG, TID AS NEEDED
     Route: 048
     Dates: start: 20060420

REACTIONS (3)
  - Gallbladder disorder [Unknown]
  - Hepatobiliary scan abnormal [None]
  - Cholecystitis [None]
